FAERS Safety Report 10632888 (Version 1)
Quarter: 2014Q4

REPORT INFORMATION
  Report Type: Spontaneous
  Country: US (occurrence: US)
  Receive Date: 20141205
  Receipt Date: 20141205
  Transmission Date: 20150529
  Serious: No
  Sender: FDA-Public Use
  Company Number: US-BRISTOL-MYERS SQUIBB COMPANY-21368576

PATIENT
  Age: 58 Year
  Sex: Female
  Weight: 52.61 kg

DRUGS (1)
  1. ORENCIA [Suspect]
     Active Substance: ABATACEPT
     Indication: RHEUMATOID ARTHRITIS
     Dosage: LAST DOSE: 28AUG14
     Route: 042
     Dates: start: 201211

REACTIONS (4)
  - Skin disorder [Unknown]
  - Cough [Unknown]
  - Pyrexia [Unknown]
  - Weight increased [Unknown]
